FAERS Safety Report 6255542-3 (Version None)
Quarter: 2009Q2

REPORT INFORMATION
  Report Type: 
  Country: None (occurrence: None)
  Receive Date: 20090630
  Receipt Date: 20090619
  Transmission Date: 20091009
  Serious: Yes (Hospitalization)
  Sender: FDA-Public Use
  Company Number: PHO-2009-010

PATIENT
  Age: 64 Year
  Sex: Female

DRUGS (6)
  1. PHOTOFRIN [Suspect]
     Indication: METASTASIS
     Dosage: 120 MG, IV; 120MG IV
     Route: 042
     Dates: start: 20090513
  2. PHOTOFRIN [Suspect]
     Indication: METASTASIS
     Dosage: 120 MG, IV; 120MG IV
     Route: 042
     Dates: start: 20090515
  3. RANITIDINE [Concomitant]
  4. NAPROXEN [Concomitant]
  5. URSODIOL [Concomitant]
  6. ROWAHOL (MENTHOL, MENTHRONE, BORNEOL, CAMPHENE + CINEOL) [Concomitant]

REACTIONS (2)
  - ANAPHYLACTIC REACTION [None]
  - HAEMODYNAMIC INSTABILITY [None]
